FAERS Safety Report 7391300-4 (Version None)
Quarter: 2011Q2

REPORT INFORMATION
  Report Type: 
  Country: None (occurrence: None)
  Receive Date: 20110404
  Receipt Date: 20100614
  Transmission Date: 20111010
  Serious: Yes (Other)
  Sender: FDA-Public Use
  Company Number: US-PFIZER INC-2010074906

PATIENT
  Sex: Male
  Weight: 108.84 kg

DRUGS (3)
  1. ZOLOFT [Suspect]
     Indication: ANXIETY
  2. DILANTIN [Concomitant]
     Indication: CONVULSION
     Dosage: UNK
  3. ZOLOFT [Suspect]
     Indication: DEPRESSION
     Dosage: 50 MG, 1X/DAY
     Route: 048
     Dates: start: 20100601

REACTIONS (1)
  - AGGRESSION [None]
